FAERS Safety Report 7186261-7 (Version None)
Quarter: 2010Q4

REPORT INFORMATION
  Report Type: 
  Country: None (occurrence: None)
  Receive Date: 20101222
  Receipt Date: 20101217
  Transmission Date: 20110411
  Serious: Yes (Hospitalization)
  Sender: FDA-Public Use
  Company Number: US-B.I. PHARMACEUTICALS,INC./RIDGEFIELD-2010-BP-14727BP

PATIENT
  Sex: Female

DRUGS (7)
  1. PRADAXA [Suspect]
     Indication: ATRIAL FIBRILLATION
     Dosage: 300 MG
     Route: 048
     Dates: start: 20101201
  2. AMIODARONE [Suspect]
     Indication: ATRIAL FIBRILLATION
  3. DILTIAZEM [Suspect]
     Indication: ATRIAL FIBRILLATION
  4. TOPRAL [Suspect]
     Indication: ATRIAL FIBRILLATION
  5. FOSAMAX [Concomitant]
     Indication: OSTEOPOROSIS
  6. LEVOXYL [Concomitant]
     Indication: HYPOTHYROIDISM
  7. SERTRALINE HYDROCHLORIDE [Concomitant]
     Indication: DEPRESSION

REACTIONS (4)
  - DIARRHOEA [None]
  - DIZZINESS [None]
  - HYPOTENSION [None]
  - RECTAL HAEMORRHAGE [None]
